FAERS Safety Report 9105249 (Version 2)
Quarter: 2013Q1

REPORT INFORMATION
  Report Type: Spontaneous
  Country: US (occurrence: US)
  Receive Date: 20130220
  Receipt Date: 20130315
  Transmission Date: 20140127
  Serious: Yes (Other)
  Sender: FDA-Public Use
  Company Number: US-GLAXOSMITHKLINE-A1005594A

PATIENT
  Sex: Female

DRUGS (1)
  1. FLOLAN [Suspect]
     Indication: PRODUCT USED FOR UNKNOWN INDICATION
     Dosage: 41.5NGKM CONTINUOUS
     Route: 065
     Dates: start: 20110921

REACTIONS (3)
  - Device related infection [Unknown]
  - Nausea [Unknown]
  - Skin infection [Unknown]
